FAERS Safety Report 5223151-0 (Version None)
Quarter: 2007Q1

REPORT INFORMATION
  Report Type: 
  Country: None (occurrence: None)
  Receive Date: 20070124
  Receipt Date: 20070108
  Transmission Date: 20070707
  Serious: Yes (Life-Threatening, Hospitalization)
  Sender: FDA-Public Use
  Company Number: FSC_0034_2007

PATIENT
  Age: 64 Year
  Sex: Female
  Weight: 71 kg

DRUGS (13)
  1. ISOPTIN [Suspect]
     Indication: ATRIAL TACHYCARDIA
     Dosage: 120 MG ONCE PO
     Route: 048
     Dates: start: 20060829, end: 20060830
  2. ACETAZOLAMIDE [Suspect]
     Indication: DIURETIC THERAPY
     Dosage: DF PO
     Route: 048
  3. FUROSEMIDE [Suspect]
     Indication: DIURETIC THERAPY
     Dosage: DF PO
     Route: 048
     Dates: end: 20060801
  4. FUROSEMIDE [Suspect]
     Indication: DIURETIC THERAPY
     Dosage: 40 MG QDAY PO
     Route: 048
     Dates: start: 20060801
  5. FUROSEMIDE [Suspect]
     Indication: DIURETIC THERAPY
     Dosage: DF PO
     Route: 048
     Dates: start: 20060101
  6. FLUINDIONE [Concomitant]
  7. PHLOROGLUCINOL [Concomitant]
  8. PREDNISOLONE [Concomitant]
  9. SPIRONOLACTONE [Concomitant]
  10. TRIMETHYLPHLOROGLUCINOL [Concomitant]
  11. ASPIRIN [Concomitant]
  12. POTASSIUM CHLORIDE [Concomitant]
  13. AEROSOL [Concomitant]

REACTIONS (19)
  - ABDOMINAL PAIN [None]
  - ACUTE HEPATIC FAILURE [None]
  - ATRIAL FLUTTER [None]
  - BRADYCARDIA [None]
  - CARDIOGENIC SHOCK [None]
  - CELL DEATH [None]
  - CHOLESTASIS [None]
  - DEHYDRATION [None]
  - HAEMODYNAMIC INSTABILITY [None]
  - HYPERKALAEMIA [None]
  - HYPONATRAEMIA [None]
  - HYPOVOLAEMIC SHOCK [None]
  - INTRACARDIAC THROMBUS [None]
  - LABORATORY TEST ABNORMAL [None]
  - LACTIC ACIDOSIS [None]
  - NAUSEA [None]
  - NO THERAPEUTIC RESPONSE [None]
  - RENAL FAILURE ACUTE [None]
  - SOMNOLENCE [None]
